FAERS Safety Report 4519762-8 (Version None)
Quarter: 2004Q4

REPORT INFORMATION
  Report Type: 
  Country: None (occurrence: None)
  Receive Date: 20041203
  Receipt Date: 20041203
  Transmission Date: 20050328
  Serious: Yes (Other)
  Sender: FDA-Public Use
  Company Number: None

PATIENT
  Age: 41 Year
  Sex: Female

DRUGS (2)
  1. PROMETHAZINE [Suspect]
     Indication: DIZZINESS
     Dosage: 25MG  PRN  INTRAVENOU
     Route: 042
     Dates: start: 20041010, end: 20041010
  2. PROMETHAZINE [Suspect]
     Dosage: 12.5     PRN    INTRAVENOU
     Route: 042

REACTIONS (4)
  - BURNING SENSATION [None]
  - ERYTHEMA [None]
  - PAIN [None]
  - SWELLING [None]
